FAERS Safety Report 5066608-8 (Version None)
Quarter: 2006Q3

REPORT INFORMATION
  Report Type: 
  Country: None (occurrence: None)
  Receive Date: 20060726
  Receipt Date: 20060630
  Transmission Date: 20061208
  Serious: Yes (Hospitalization, Other)
  Sender: FDA-Public Use
  Company Number: 2005142180

PATIENT
  Age: 77 Year
  Sex: Female
  Weight: 79.3795 kg

DRUGS (12)
  1. BEXTRA [Suspect]
     Indication: INFLAMMATION
     Dosage: 20 MG (20 MG, 1 IN 1 D), ORAL
     Route: 048
     Dates: start: 20021127
  2. BEXTRA [Suspect]
     Indication: OSTEOARTHRITIS
     Dosage: 20 MG (20 MG, 1 IN 1 D), ORAL
     Route: 048
     Dates: start: 20021127
  3. BEXTRA [Suspect]
     Indication: PAIN
     Dosage: 20 MG (20 MG, 1 IN 1 D), ORAL
     Route: 048
     Dates: start: 20021127
  4. NIFEDICAL (NIFEDIPINE) [Concomitant]
  5. PROPAFENONE HCL [Concomitant]
  6. ALLOPURINOL [Concomitant]
  7. POTASSIUM CHLORIDE [Concomitant]
  8. AMILORIDE HCL W/HYDROCHLOROTHIAZIDE (AMILORIDE HYDROCHLORIDE, HYDROCHL [Concomitant]
  9. TRICOR [Concomitant]
  10. CALCIUM (CALCIUM) [Concomitant]
  11. ASPIRIN [Concomitant]
  12. PRAVACHOL [Concomitant]

REACTIONS (3)
  - ANAEMIA [None]
  - CEREBROVASCULAR ACCIDENT [None]
  - GENERAL PHYSICAL HEALTH DETERIORATION [None]
